FAERS Safety Report 21795284 (Version 1)
Quarter: 2022Q4

REPORT INFORMATION
  Report Type: Spontaneous
  Country: US (occurrence: None)
  Receive Date: 20221228
  Receipt Date: 20221228
  Transmission Date: 20230112
  Serious: No
  Sender: FDA-Public Use
  Company Number: None

PATIENT
  Age: 42 Year
  Sex: Male
  Weight: 92.99 kg

DRUGS (1)
  1. ENBREL [Suspect]
     Active Substance: ETANERCEPT
     Indication: Ankylosing spondylitis
     Dosage: INJECT 50MG  SUBCUTANEOUSLY  ONCE WEEKLY  AS DIRECTED
     Route: 058
     Dates: start: 202208

REACTIONS (2)
  - COVID-19 [None]
  - Therapy interrupted [None]
